FAERS Safety Report 14824943 (Version 1)
Quarter: 2018Q2

REPORT INFORMATION
  Report Type: Spontaneous
  Country: DE (occurrence: DE)
  Receive Date: 20180430
  Receipt Date: 20180430
  Transmission Date: 20180711
  Serious: Yes (Hospitalization)
  Sender: FDA-Public Use
  Company Number: DE-ESPERO PHARMACEUTICALS-ESP201804-000018

PATIENT
  Age: 76 Year
  Sex: Male

DRUGS (6)
  1. EBRANTIL [Suspect]
     Active Substance: URAPIDIL
  2. NITROGLYCERIN. [Suspect]
     Active Substance: NITROGLYCERIN
     Route: 060
  3. RAMILICH [Suspect]
     Active Substance: RAMIPRIL
     Route: 048
  4. INDAPAMID HEUMANN [Concomitant]
     Route: 048
  5. AMLODIPINE BESILATE [Suspect]
     Active Substance: AMLODIPINE BESYLATE
     Route: 048
  6. ASS ACTAVIS [Concomitant]
     Route: 048

REACTIONS (1)
  - Syncope [Unknown]
